FAERS Safety Report 14703308 (Version 3)
Quarter: 2021Q2

REPORT INFORMATION
  Report Type: Spontaneous
  Country: US (occurrence: US)
  Receive Date: 20180402
  Receipt Date: 20210629
  Transmission Date: 20210716
  Serious: Yes (Other)
  Sender: FDA-Public Use
  Company Number: US-ASTRAZENECA-2018SE37783

PATIENT
  Age: 23416 Day
  Sex: Male
  Weight: 97.5 kg

DRUGS (80)
  1. ASPIRIN. [Concomitant]
     Active Substance: ASPIRIN
     Indication: PAIN
     Dates: start: 20151122, end: 20151124
  2. FAMOTIDINE. [Concomitant]
     Active Substance: FAMOTIDINE
  3. FLOVENT [Concomitant]
     Active Substance: FLUTICASONE PROPIONATE
  4. VITAMIN D2 [Concomitant]
     Active Substance: ERGOCALCIFEROL
  5. DYRENIUM [Concomitant]
     Active Substance: TRIAMTERENE
  6. AMBROXOL/SULFAMETHOXAZOLE/TRIMETHOPRIM [Concomitant]
  7. VITAMIN A [Concomitant]
     Active Substance: VITAMIN A
  8. EPOETIN [Concomitant]
     Active Substance: ERYTHROPOIETIN
  9. MYCOPHENOLATE [Concomitant]
     Active Substance: MYCOPHENOLIC ACID
  10. TRUVADA [Concomitant]
     Active Substance: EMTRICITABINE\TENOFOVIR DISOPROXIL FUMARATE
  11. HYDROCODONE/PARACETAMOL [Concomitant]
     Active Substance: ACETAMINOPHEN\HYDROCODONE BITARTRATE
  12. VERSED [Concomitant]
     Active Substance: MIDAZOLAM HYDROCHLORIDE
  13. CHLORASEPTIC SORE THROAT [Concomitant]
     Active Substance: PHENOL
  14. PROTONIX [Suspect]
     Active Substance: PANTOPRAZOLE SODIUM
     Indication: GASTROINTESTINAL DISORDER
     Route: 065
     Dates: start: 20110605, end: 20161226
  15. PROGRAF [Concomitant]
     Active Substance: TACROLIMUS
     Indication: ORGAN TRANSPLANT
     Dates: start: 20141030, end: 20150522
  16. TRAMADOL. [Concomitant]
     Active Substance: TRAMADOL
     Indication: PAIN
     Dates: start: 20080911, end: 20150226
  17. MULTIVITAMIN [Concomitant]
     Active Substance: VITAMINS
     Indication: HYPOVITAMINOSIS
     Dates: start: 20151125
  18. TYLENOL [Concomitant]
     Active Substance: ACETAMINOPHEN
     Indication: HEADACHE
     Dates: start: 20151121, end: 20151124
  19. EPLERENONE. [Concomitant]
     Active Substance: EPLERENONE
  20. METOLAZONE. [Concomitant]
     Active Substance: METOLAZONE
  21. LEVAQUIN [Concomitant]
     Active Substance: LEVOFLOXACIN
  22. AMILORIDE [Concomitant]
     Active Substance: AMILORIDE
  23. HUMALOG [Concomitant]
     Active Substance: INSULIN LISPRO
  24. OMEPRAZOLE. [Suspect]
     Active Substance: OMEPRAZOLE
     Indication: GASTROINTESTINAL DISORDER
     Dosage: GENERIC
     Route: 065
     Dates: start: 20100120, end: 20140923
  25. PROTONIX [Suspect]
     Active Substance: PANTOPRAZOLE SODIUM
     Indication: GASTROOESOPHAGEAL REFLUX DISEASE
     Route: 065
     Dates: start: 200901, end: 201605
  26. PROTONIX [Suspect]
     Active Substance: PANTOPRAZOLE SODIUM
     Indication: GASTROOESOPHAGEAL REFLUX DISEASE
     Route: 065
     Dates: start: 20110605, end: 20161226
  27. POLYETHYLENE GLYCOL [Concomitant]
     Active Substance: POLYETHYLENE GLYCOLS
  28. PNEUMOVAX 23 [Concomitant]
     Active Substance: PNEUMOCOCCAL VACCINE, POLYVALENT 23
  29. JANUVIA [Concomitant]
     Active Substance: SITAGLIPTIN PHOSPHATE
  30. PRILOSEC OTC [Suspect]
     Active Substance: OMEPRAZOLE MAGNESIUM
     Indication: GASTROOESOPHAGEAL REFLUX DISEASE
     Route: 048
     Dates: start: 200901, end: 201605
  31. OMEPRAZOLE. [Suspect]
     Active Substance: OMEPRAZOLE
     Indication: GASTROINTESTINAL DISORDER
     Dosage: GENERIC
     Route: 065
     Dates: start: 20100120, end: 20140923
  32. PROTONIX [Suspect]
     Active Substance: PANTOPRAZOLE SODIUM
     Indication: GASTROOESOPHAGEAL REFLUX DISEASE
     Route: 065
     Dates: start: 20110605, end: 20161226
  33. DIPHENHYDRAMINE. [Concomitant]
     Active Substance: DIPHENHYDRAMINE
     Indication: NASOPHARYNGITIS
     Dates: start: 20151121, end: 20151124
  34. LACTULOSE. [Concomitant]
     Active Substance: LACTULOSE
  35. IOPEHN?C [Concomitant]
  36. TRIAMCINOLONE [Concomitant]
     Active Substance: TRIAMCINOLONE
  37. ZINC. [Concomitant]
     Active Substance: ZINC
  38. SPIRONOLACTONE. [Concomitant]
     Active Substance: SPIRONOLACTONE
  39. DIPHENHYDRAMINE. [Concomitant]
     Active Substance: DIPHENHYDRAMINE
  40. BACTRIM [Concomitant]
     Active Substance: SULFAMETHOXAZOLE\TRIMETHOPRIM
  41. PROBIOTIC [Concomitant]
     Active Substance: PROBIOTICS NOS
  42. FENTANYL. [Concomitant]
     Active Substance: FENTANYL
  43. PRILOSEC OTC [Suspect]
     Active Substance: OMEPRAZOLE MAGNESIUM
     Indication: GASTROINTESTINAL DISORDER
     Route: 048
     Dates: start: 200901, end: 201605
  44. PROTONIX [Suspect]
     Active Substance: PANTOPRAZOLE SODIUM
     Indication: GASTROINTESTINAL DISORDER
     Route: 065
     Dates: start: 200901, end: 201605
  45. CIPROFLOXACIN. [Concomitant]
     Active Substance: CIPROFLOXACIN
     Indication: BACTERIAL INFECTION
     Dates: start: 20110613, end: 20151124
  46. AMOXICILLIN. [Concomitant]
     Active Substance: AMOXICILLIN
     Indication: DENTAL CARE
     Dates: start: 20140403, end: 20140512
  47. ASPIRIN. [Concomitant]
     Active Substance: ASPIRIN
     Indication: INFLAMMATION
     Dates: start: 20151122, end: 20151124
  48. TYLENOL [Concomitant]
     Active Substance: ACETAMINOPHEN
     Indication: PYREXIA
     Dates: start: 20151121, end: 20151124
  49. NADOLOL. [Concomitant]
     Active Substance: NADOLOL
  50. FERROUS SULFATE. [Concomitant]
     Active Substance: FERROUS SULFATE
  51. MAGNESIUM OXIDE. [Concomitant]
     Active Substance: MAGNESIUM OXIDE
  52. PREDNISONE. [Concomitant]
     Active Substance: PREDNISONE
  53. NYSTATIN. [Concomitant]
     Active Substance: NYSTATIN
  54. VALCYTE [Concomitant]
     Active Substance: VALGANCICLOVIR HYDROCHLORIDE
  55. URSODIOL. [Concomitant]
     Active Substance: URSODIOL
  56. MULTIVITAMINS [Concomitant]
     Active Substance: VITAMINS
  57. AMOXICILLIN. [Concomitant]
     Active Substance: AMOXICILLIN
  58. BYDUREON [Concomitant]
     Active Substance: EXENATIDE
  59. TRAMADOL. [Concomitant]
     Active Substance: TRAMADOL
  60. VITMAIN B12 [Concomitant]
  61. ZOSTER [Concomitant]
  62. PROCRIT [Concomitant]
     Active Substance: ERYTHROPOIETIN
  63. MORPHINE [Concomitant]
     Active Substance: MORPHINE
  64. ANASARCA [Concomitant]
  65. VANCOMYCIN [Concomitant]
     Active Substance: VANCOMYCIN
     Indication: BACTERIAL INFECTION
     Dates: start: 20141105, end: 20141204
  66. POTASSIUM CHLORIDE. [Concomitant]
     Active Substance: POTASSIUM CHLORIDE
  67. BUMETANIDE. [Concomitant]
     Active Substance: BUMETANIDE
  68. ACYCLOVIR. [Concomitant]
     Active Substance: ACYCLOVIR
  69. BETA?CAROTENE [Concomitant]
  70. XIFAXAN [Concomitant]
     Active Substance: RIFAXIMIN
  71. CLOBETASOL [Concomitant]
     Active Substance: CLOBETASOL
  72. MAXZIDE [Concomitant]
     Active Substance: HYDROCHLOROTHIAZIDE\TRIAMTERENE
  73. ZOFRAN [Concomitant]
     Active Substance: ONDANSETRON HYDROCHLORIDE
  74. PROTONIX [Suspect]
     Active Substance: PANTOPRAZOLE SODIUM
     Indication: GASTROINTESTINAL DISORDER
     Route: 065
     Dates: start: 20110605, end: 20161226
  75. ASPIRIN. [Concomitant]
     Active Substance: ASPIRIN
     Indication: PYREXIA
     Dates: start: 20151122, end: 20151124
  76. HYDROCODONE [Concomitant]
     Active Substance: HYDROCODONE
     Indication: PAIN
     Dates: start: 20151122, end: 20151124
  77. CEPHALEXIN. [Concomitant]
     Active Substance: CEPHALEXIN
  78. FUROSEMIDE. [Concomitant]
     Active Substance: FUROSEMIDE
  79. MAGNESIUM GLUCONATE [Concomitant]
     Active Substance: MAGNESIUM GLUCONATE
  80. ZOSYN [Concomitant]
     Active Substance: PIPERACILLIN SODIUM\TAZOBACTAM SODIUM

REACTIONS (5)
  - Acute kidney injury [Unknown]
  - Dyspepsia [Unknown]
  - End stage renal disease [Unknown]
  - Chronic kidney disease [Unknown]
  - Tubulointerstitial nephritis [Unknown]

NARRATIVE: CASE EVENT DATE: 20141007
